FAERS Safety Report 26145004 (Version 1)
Quarter: 2025Q4

REPORT INFORMATION
  Report Type: Spontaneous
  Country: BR (occurrence: BR)
  Receive Date: 20251211
  Receipt Date: 20251211
  Transmission Date: 20260117
  Serious: Yes (Hospitalization, Other)
  Sender: JOHNSON AND JOHNSON
  Company Number: BR-JNJFOC-20251206304

PATIENT
  Age: 48 Year
  Sex: Male
  Weight: 84 kg

DRUGS (1)
  1. TECVAYLI [Suspect]
     Active Substance: TECLISTAMAB-CQYV
     Indication: Plasma cell myeloma
     Dosage: LAST ADMINISTERED IN --2025
     Route: 058

REACTIONS (6)
  - Plasma cell myeloma [Not Recovered/Not Resolved]
  - Leukaemia [Unknown]
  - Pneumonia fungal [Unknown]
  - Liver injury [Unknown]
  - Decreased immune responsiveness [Unknown]
  - Pleural effusion [Unknown]

NARRATIVE: CASE EVENT DATE: 20250101
